FAERS Safety Report 24850348 (Version 2)
Quarter: 2025Q1

REPORT INFORMATION
  Report Type: Spontaneous
  Country: IT (occurrence: IT)
  Receive Date: 20250116
  Receipt Date: 20250130
  Transmission Date: 20250408
  Serious: Yes (Hospitalization, Other)
  Sender: BRACCO
  Company Number: None

PATIENT
  Age: 79 Year
  Sex: Male

DRUGS (1)
  1. IOMERON [Suspect]
     Active Substance: IOMEPROL
     Indication: Computerised tomogram
     Route: 042
     Dates: start: 20241202, end: 20241202

REACTIONS (3)
  - Erythema [Unknown]
  - Petit mal epilepsy [Unknown]
  - Hypotension [Unknown]

NARRATIVE: CASE EVENT DATE: 20241202
